APPROVED DRUG PRODUCT: ZOLPIDEM TARTRATE
Active Ingredient: ZOLPIDEM TARTRATE
Strength: 1.75MG
Dosage Form/Route: TABLET;SUBLINGUAL
Application: A204299 | Product #001 | TE Code: AB
Applicant: NOVEL LABORATORIES INC
Approved: Jun 3, 2015 | RLD: No | RS: No | Type: RX